FAERS Safety Report 8606998 (Version 2)
Quarter: 2013Q3

REPORT INFORMATION
  Report Type: Spontaneous
  Country: US (occurrence: US)
  Receive Date: 20120611
  Receipt Date: 20130704
  Transmission Date: 20140515
  Serious: Yes (Hospitalization, Other)
  Sender: FDA-Public Use
  Company Number: US-ASTRAZENECA-2012SE34459

PATIENT
  Age: 23185 Day
  Sex: Female

DRUGS (10)
  1. NEXIUM [Suspect]
     Route: 048
  2. PRILOSEC OTC [Suspect]
     Route: 048
  3. PROTONIX [Concomitant]
  4. PREVACID [Concomitant]
  5. LISINOPRIL [Concomitant]
     Indication: HYPERTENSION
  6. TORSIMIDE [Concomitant]
     Indication: ELECTROLYTE IMBALANCE
  7. SPIRONOLACTONE [Concomitant]
     Indication: FLUID RETENTION
  8. ALBUTEROL [Concomitant]
     Indication: ASTHMA
  9. PLAVIX [Concomitant]
     Indication: COAGULOPATHY
  10. LIPITOR [Concomitant]
     Indication: BLOOD CHOLESTEROL ABNORMAL

REACTIONS (14)
  - Transient ischaemic attack [Unknown]
  - Osteoporosis [Unknown]
  - Multiple fractures [Unknown]
  - Wrist fracture [Unknown]
  - Rib fracture [Unknown]
  - Arthritis [Unknown]
  - Cataract [Unknown]
  - Diabetes mellitus [Unknown]
  - Rheumatoid arthritis [Unknown]
  - Osteoarthritis [Unknown]
  - Type 1 diabetes mellitus [Unknown]
  - Intervertebral disc degeneration [Unknown]
  - Lumbar spinal stenosis [Unknown]
  - Synovial cyst [Unknown]
